FAERS Safety Report 9350611 (Version 1)
Quarter: 2013Q2

REPORT INFORMATION
  Report Type: Spontaneous
  Country: GB (occurrence: GB)
  Receive Date: 20130617
  Receipt Date: 20130617
  Transmission Date: 20140414
  Serious: Yes (Life-Threatening, Disabling)
  Sender: FDA-Public Use
  Company Number: GB-JNJFOC-20130607551

PATIENT
  Age: 16 Year
  Sex: Male

DRUGS (2)
  1. IMODIUM CLASSIC [Suspect]
     Indication: DIARRHOEA
     Route: 048
     Dates: start: 20130529, end: 20130529
  2. CO-CODAMOL [Concomitant]
     Indication: PRODUCT USED FOR UNKNOWN INDICATION
     Route: 065

REACTIONS (2)
  - Stevens-Johnson syndrome [Not Recovered/Not Resolved]
  - Feeling abnormal [Unknown]
